FAERS Safety Report 4950308-6 (Version None)
Quarter: 2006Q1

REPORT INFORMATION
  Report Type: 
  Country: None (occurrence: None)
  Receive Date: 20060316
  Receipt Date: 20060302
  Transmission Date: 20060701
  Serious: Yes (Hospitalization)
  Sender: FDA-Public Use
  Company Number: VNL_0114_2006

PATIENT
  Age: 50 Year
  Sex: Male

DRUGS (8)
  1. APO-GO [Suspect]
     Indication: PARKINSON'S DISEASE
     Dosage: VAR Q1HR SC
     Route: 058
     Dates: start: 20060127, end: 20060210
  2. CARBIDOPA + LEVODOPA [Concomitant]
  3. COMTESS [Concomitant]
  4. REQUIP [Concomitant]
  5. AMANTADINE HCL [Concomitant]
  6. SEROQUEL [Concomitant]
  7. TEGRETOL [Concomitant]
  8. DIAZEPAM [Concomitant]

REACTIONS (7)
  - ABNORMAL BEHAVIOUR [None]
  - CONDITION AGGRAVATED [None]
  - EXCESSIVE MASTURBATION [None]
  - INCORRECT DOSE ADMINISTERED [None]
  - LIBIDO INCREASED [None]
  - SEXUAL ACTIVITY INCREASED [None]
  - SEXUAL OFFENCE [None]
